FAERS Safety Report 16938983 (Version 1)
Quarter: 2019Q4

REPORT INFORMATION
  Report Type: Spontaneous
  Country: US (occurrence: US)
  Receive Date: 20191020
  Receipt Date: 20191020
  Transmission Date: 20200122
  Serious: No
  Sender: FDA-Public Use
  Company Number: US-009507513-1910USA002506

PATIENT
  Age: 14 Year
  Sex: Male

DRUGS (3)
  1. INFLIXIMAB [Concomitant]
     Active Substance: INFLIXIMAB
     Indication: INFLAMMATORY BOWEL DISEASE
  2. COZAAR [Suspect]
     Active Substance: LOSARTAN POTASSIUM
     Indication: COLLAGEN DISORDER
     Route: 048
  3. METHOTREXATE. [Concomitant]
     Active Substance: METHOTREXATE
     Indication: INFLAMMATORY BOWEL DISEASE
     Route: 048

REACTIONS (1)
  - Product use in unapproved indication [Unknown]
